FAERS Safety Report 4313406-6 (Version None)
Quarter: 2004Q1

REPORT INFORMATION
  Report Type: 
  Country: None (occurrence: None)
  Receive Date: 20040305
  Receipt Date: 20040305
  Transmission Date: 20041129
  Serious: Yes (Hospitalization)
  Sender: FDA-Public Use
  Company Number: None

PATIENT
  Age: 8 Year
  Sex: Male
  Weight: 42.1 kg

DRUGS (4)
  1. SEROQUEL (QUETIAPROLE) [Suspect]
     Indication: ATTENTION DEFICIT/HYPERACTIVITY DISORDER
     Dosage: 25 MG Q AM , 50 MG QHS
     Route: 048
  2. SEROQUEL (QUETIAPROLE) [Suspect]
     Indication: SOMNOLENCE
     Dosage: 25 MG Q AM , 50 MG QHS
     Route: 048
  3. SEROQUEL (QUETIAPROLE) [Suspect]
     Indication: ATTENTION DEFICIT/HYPERACTIVITY DISORDER
     Dosage: 25 MG Q AM , 50 MG QHS
     Route: 048
  4. SEROQUEL (QUETIAPROLE) [Suspect]
     Indication: SOMNOLENCE
     Dosage: 25 MG Q AM , 50 MG QHS
     Route: 048

REACTIONS (3)
  - BONE MARROW DEPRESSION [None]
  - NEUTROPENIA [None]
  - THROMBOCYTOPENIA [None]
